FAERS Safety Report 21609935 (Version 1)
Quarter: 2022Q4

REPORT INFORMATION
  Report Type: Spontaneous
  Country: US (occurrence: None)
  Receive Date: 20221117
  Receipt Date: 20221117
  Transmission Date: 20230113
  Serious: Yes (Other)
  Sender: FDA-Public Use
  Company Number: None

PATIENT
  Age: 41 Year
  Sex: Female
  Weight: 82.4 kg

DRUGS (1)
  1. BEBTELOVIMAB [Suspect]
     Active Substance: BEBTELOVIMAB
     Indication: COVID-19 treatment

REACTIONS (4)
  - Feeling hot [None]
  - Flushing [None]
  - Nausea [None]
  - Salivary hypersecretion [None]

NARRATIVE: CASE EVENT DATE: 20221116
